FAERS Safety Report 7578618-7 (Version None)
Quarter: 2011Q2

REPORT INFORMATION
  Report Type: 
  Country: None (occurrence: None)
  Receive Date: 20110628
  Receipt Date: 20110616
  Transmission Date: 20111010
  Serious: Yes (Other)
  Sender: FDA-Public Use
  Company Number: KR-EISAI INC-E3810-04758-SPO-KR

PATIENT
  Sex: Male

DRUGS (3)
  1. WARFARIN SODIUM [Concomitant]
     Indication: VENTRICULAR TACHYCARDIA
  2. RABEPRAZOLE SODIUM [Suspect]
     Route: 048
     Dates: start: 20100101
  3. SIMVASTATIN [Concomitant]

REACTIONS (10)
  - VENTRICULAR TACHYCARDIA [None]
  - ALANINE AMINOTRANSFERASE INCREASED [None]
  - CONSTIPATION [None]
  - PROTEINURIA [None]
  - DIARRHOEA [None]
  - HAEMATURIA [None]
  - BLOOD TRIGLYCERIDES INCREASED [None]
  - THIRST [None]
  - ASPARTATE AMINOTRANSFERASE INCREASED [None]
  - BLOOD UREA INCREASED [None]
